FAERS Safety Report 22049637 (Version 2)
Quarter: 2023Q1

REPORT INFORMATION
  Report Type: Spontaneous
  Country: FR (occurrence: FR)
  Receive Date: 20230301
  Receipt Date: 20230329
  Transmission Date: 20230417
  Serious: Yes (Life-Threatening, Hospitalization, Disabling, Other)
  Sender: FDA-Public Use
  Company Number: FR-009507513-2302FRA007434

PATIENT
  Age: 78 Year
  Sex: Female
  Weight: 51 kg

DRUGS (5)
  1. KEYTRUDA [Suspect]
     Active Substance: PEMBROLIZUMAB
     Indication: Endometrial adenocarcinoma
     Dosage: 200 MILLIGRAM, Q3W
     Route: 042
     Dates: start: 20221102, end: 20230104
  2. LENVATINIB MESYLATE [Suspect]
     Active Substance: LENVATINIB MESYLATE
     Indication: Endometrial adenocarcinoma
     Dosage: 14 MILLIGRAM, QD
     Route: 048
     Dates: start: 20221102, end: 20221119
  3. ESOMEPRAZOLE SODIUM [Concomitant]
     Active Substance: ESOMEPRAZOLE SODIUM
     Indication: Gastrooesophageal reflux disease
     Dosage: 40 MILLIGRAM, QD
  4. PRAVASTATIN SODIUM [Concomitant]
     Active Substance: PRAVASTATIN SODIUM
     Indication: Hypercholesterolaemia
     Dosage: 20 MILLIGRAM, QD
  5. CANDESARTAN [Concomitant]
     Active Substance: CANDESARTAN
     Indication: Hypertension
     Dosage: 8 MILLIGRAM, QD

REACTIONS (4)
  - Type 1 diabetes mellitus [Recovered/Resolved with Sequelae]
  - Diabetic ketoacidosis [Recovered/Resolved with Sequelae]
  - Malignant neoplasm progression [Unknown]
  - Product use issue [Unknown]

NARRATIVE: CASE EVENT DATE: 20221102
